FAERS Safety Report 8068032-2 (Version None)
Quarter: 2012Q1

REPORT INFORMATION
  Report Type: 
  Country: None (occurrence: None)
  Receive Date: 20120124
  Receipt Date: 20110912
  Transmission Date: 20120608
  Serious: No
  Sender: FDA-Public Use
  Company Number: US-AMGEN-USASP2011046589

PATIENT
  Age: 70 Year
  Sex: Female

DRUGS (3)
  1. TIROSINT [Concomitant]
     Indication: HYPOTHYROIDISM
     Dosage: UNK
  2. TEGRETOL [Concomitant]
     Indication: CONVULSION
  3. PROLIA [Suspect]
     Indication: OSTEOPOROSIS POSTMENOPAUSAL
     Dosage: 60 MG, Q6MO
     Dates: start: 20110908

REACTIONS (2)
  - MUSCULOSKELETAL DISCOMFORT [None]
  - PAIN IN EXTREMITY [None]
